FAERS Safety Report 20368176 (Version 1)
Quarter: 2022Q1

REPORT INFORMATION
  Report Type: Spontaneous
  Country: US (occurrence: US)
  Receive Date: 20220124
  Receipt Date: 20220124
  Transmission Date: 20220423
  Serious: No
  Sender: FDA-Public Use
  Company Number: US-BEH-2022140736

PATIENT
  Age: 76 Year
  Sex: Male

DRUGS (2)
  1. PRIVIGEN [Suspect]
     Active Substance: HUMAN IMMUNOGLOBULIN G
     Dosage: UNK
     Route: 065
  2. PRIVIGEN [Suspect]
     Active Substance: HUMAN IMMUNOGLOBULIN G
     Dosage: UNK
     Route: 065

REACTIONS (8)
  - Pruritus [Unknown]
  - Recalled product administered [Unknown]
  - Chest pain [Unknown]
  - Recalled product administered [Unknown]
  - Lip swelling [Unknown]
  - Recalled product administered [Unknown]
  - Swelling [Unknown]
  - Recalled product administered [Unknown]

NARRATIVE: CASE EVENT DATE: 20220101
